FAERS Safety Report 6929906-6 (Version None)
Quarter: 2010Q3

REPORT INFORMATION
  Report Type: 
  Country: None (occurrence: None)
  Receive Date: 20100818
  Receipt Date: 20100812
  Transmission Date: 20110219
  Serious: Yes (Hospitalization)
  Sender: FDA-Public Use
  Company Number: DE-TEVA-244663ISR

PATIENT
  Sex: Female
  Weight: 49.8 kg

DRUGS (1)
  1. GEMCITABINE [Suspect]
     Indication: LUNG ADENOCARCINOMA
     Route: 042

REACTIONS (1)
  - BILE DUCT STENOSIS [None]
